FAERS Safety Report 7693059-X (Version None)
Quarter: 2011Q3

REPORT INFORMATION
  Report Type: 
  Country: None (occurrence: None)
  Receive Date: 20110819
  Receipt Date: 20110817
  Transmission Date: 20111222
  Serious: Yes (Other)
  Sender: FDA-Public Use
  Company Number: US-PFIZER INC-2011190853

PATIENT
  Age: 52 Year
  Sex: Male
  Weight: 81.633 kg

DRUGS (2)
  1. CHANTIX [Suspect]
     Dosage: 0.5 MG, DAILY
     Route: 048
     Dates: start: 20110401
  2. CHANTIX [Suspect]
     Indication: SMOKING CESSATION THERAPY
     Dosage: 0.5 MG, DAILY
     Route: 048
     Dates: start: 20100101, end: 20100101

REACTIONS (3)
  - ANXIETY [None]
  - DRUG DEPENDENCE [None]
  - FEELING ABNORMAL [None]
